FAERS Safety Report 7148827-X (Version None)
Quarter: 2010Q4

REPORT INFORMATION
  Report Type: 
  Country: None (occurrence: None)
  Receive Date: 20101209
  Receipt Date: 20101130
  Transmission Date: 20110411
  Serious: Yes (Other)
  Sender: FDA-Public Use
  Company Number: PHHY2010JP81589

PATIENT
  Age: 25 Year
  Sex: Male

DRUGS (1)
  1. NEORAL [Suspect]
     Dosage: 25 MG DAILY
     Route: 048

REACTIONS (4)
  - DRUG ADMINISTRATION ERROR [None]
  - MALAISE [None]
  - PYREXIA [None]
  - WHITE BLOOD CELL COUNT INCREASED [None]
